FAERS Safety Report 24056764 (Version 1)
Quarter: 2024Q3

REPORT INFORMATION
  Report Type: Report from Study
  Country: US (occurrence: US)
  Receive Date: 20240705
  Receipt Date: 20240705
  Transmission Date: 20241016
  Serious: Yes (Hospitalization, Other)
  Sender: ABBVIE
  Company Number: US-ABBVIE-5826911

PATIENT
  Sex: Female

DRUGS (2)
  1. HUMIRA [Suspect]
     Active Substance: ADALIMUMAB
     Indication: Product used for unknown indication
     Dosage: CITRATE FREE?LAST ADMIN DATE 2024?FORM STRENGTH: 40 MILLIGRAM
     Route: 058
     Dates: start: 20240208
  2. HUMIRA [Suspect]
     Active Substance: ADALIMUMAB
     Dosage: CITRATE FREE?FIRST ADMIN DATE 2024?FORM STRENGTH: 40 MILLIGRAM
     Route: 058

REACTIONS (2)
  - Appendicectomy [Recovering/Resolving]
  - Nosocomial infection [Unknown]

NARRATIVE: CASE EVENT DATE: 20240101
